FAERS Safety Report 9412685 (Version 4)
Quarter: 2013Q3

REPORT INFORMATION
  Report Type: Spontaneous
  Country: US (occurrence: US)
  Receive Date: 20130722
  Receipt Date: 20130823
  Transmission Date: 20140515
  Serious: Yes (Hospitalization, Other)
  Sender: FDA-Public Use
  Company Number: US-JNJFOC-20130707667

PATIENT
  Age: 73 Year
  Sex: Female
  Weight: 60.96 kg

DRUGS (6)
  1. XARELTO [Suspect]
     Indication: CEREBROVASCULAR ACCIDENT PROPHYLAXIS
     Route: 048
     Dates: start: 20130607, end: 20130707
  2. XARELTO [Suspect]
     Indication: ATRIAL FIBRILLATION
     Route: 048
     Dates: start: 20130607, end: 20130707
  3. ASPIRIN [Suspect]
     Indication: CORONARY ARTERIAL STENT INSERTION
     Route: 065
     Dates: start: 201209
  4. ASPIRIN [Suspect]
     Indication: ANTIPLATELET THERAPY
     Route: 065
     Dates: start: 201209
  5. PLAVIX [Suspect]
     Indication: CORONARY ARTERIAL STENT INSERTION
     Route: 065
     Dates: start: 201209
  6. PLAVIX [Suspect]
     Indication: ANTIPLATELET THERAPY
     Route: 065
     Dates: start: 201209

REACTIONS (3)
  - Gastrointestinal haemorrhage [Recovered/Resolved]
  - Haemoglobin decreased [Unknown]
  - International normalised ratio increased [Not Recovered/Not Resolved]
